FAERS Safety Report 16978842 (Version 2)
Quarter: 2020Q1

REPORT INFORMATION
  Report Type: Report from Study
  Country: US (occurrence: US)
  Receive Date: 20191031
  Receipt Date: 20200123
  Transmission Date: 20200409
  Serious: Yes (Disabling)
  Sender: FDA-Public Use
  Company Number: US-SA-2019SA298756

PATIENT
  Age: 55 Year
  Sex: Female

DRUGS (1)
  1. TERIFLUNOMIDE. [Suspect]
     Active Substance: TERIFLUNOMIDE
     Indication: MULTIPLE SCLEROSIS
     Dosage: 14 MG, QD
     Route: 048
     Dates: start: 20191018

REACTIONS (4)
  - Hypersomnia [Not Recovered/Not Resolved]
  - Chromaturia [Not Recovered/Not Resolved]
  - Urinary tract infection [Unknown]
  - Wheelchair user [Unknown]

NARRATIVE: CASE EVENT DATE: 201911
